FAERS Safety Report 5195425-3 (Version None)
Quarter: 2006Q4

REPORT INFORMATION
  Report Type: 
  Country: None (occurrence: None)
  Receive Date: 20061229
  Receipt Date: 20050831
  Transmission Date: 20070319
  Serious: Yes (Other)
  Sender: FDA-Public Use
  Company Number: US-PFIZER INC-2005122549

PATIENT
  Sex: Male
  Weight: 81.6 kg

DRUGS (11)
  1. LIPITOR [Suspect]
     Indication: BLOOD CHOLESTEROL
     Route: 065
     Dates: start: 20050812, end: 20050828
  2. NEURONTIN [Suspect]
     Indication: NERVOUS SYSTEM DISORDER
     Route: 065
  3. NEURONTIN [Suspect]
     Indication: CEREBROVASCULAR ACCIDENT
  4. LYRICA [Suspect]
     Indication: DRUG USE FOR UNKNOWN INDICATION
  5. ASPIRIN [Concomitant]
     Route: 065
  6. NAPROSYN [Concomitant]
     Route: 065
  7. IBUPROFEN [Concomitant]
     Route: 065
  8. COREG [Concomitant]
     Route: 065
  9. HYDROCHLOROTHIAZIDE [Concomitant]
     Route: 065
  10. ZANAFLEX [Concomitant]
     Route: 065
  11. AMBIEN [Concomitant]
     Route: 065

REACTIONS (8)
  - BACK PAIN [None]
  - BLOOD CHOLESTEROL ABNORMAL [None]
  - GAIT DISTURBANCE [None]
  - LIMB INJURY [None]
  - LUMBAR SPINAL STENOSIS [None]
  - PAIN IN EXTREMITY [None]
  - SPINAL FUSION SURGERY [None]
  - SURGERY [None]
